FAERS Safety Report 16457691 (Version 6)
Quarter: 2021Q3

REPORT INFORMATION
  Report Type: Spontaneous
  Country: US (occurrence: US)
  Receive Date: 20190620
  Receipt Date: 20210810
  Transmission Date: 20211014
  Serious: Yes (Other)
  Sender: FDA-Public Use
  Company Number: US-PFIZER INC-2019258247

PATIENT
  Age: 43 Year
  Sex: Female
  Weight: 93.44 kg

DRUGS (3)
  1. LYRICA [Suspect]
     Active Substance: PREGABALIN
     Indication: FIBROMYALGIA
     Dosage: 150 MG, 4X/DAY
     Route: 048
  2. LYRICA [Suspect]
     Active Substance: PREGABALIN
     Indication: NEURALGIA
  3. LYRICA [Suspect]
     Active Substance: PREGABALIN
     Indication: PAIN
     Dosage: UNK, 1X/DAY (TAKING A DAY (INDICATING THAT SHE TAKING LESS THAN PRESCRIBED))

REACTIONS (11)
  - Neoplasm malignant [Unknown]
  - Weight increased [Unknown]
  - Anxiety [Unknown]
  - Depression [Unknown]
  - Off label use [Unknown]
  - Therapeutic product effect incomplete [Unknown]
  - Memory impairment [Unknown]
  - Hypersomnia [Unknown]
  - Intentional product use issue [Unknown]
  - Fungal skin infection [Unknown]
  - Nerve injury [Unknown]

NARRATIVE: CASE EVENT DATE: 2012
